FAERS Safety Report 8588175-4 (Version None)
Quarter: 2012Q3

REPORT INFORMATION
  Report Type: 
  Country: None (occurrence: None)
  Receive Date: 20120731
  Receipt Date: 20120719
  Transmission Date: 20120928
  Serious: Yes (Hospitalization)
  Sender: FDA-Public Use
  Company Number: JPI-P-022630

PATIENT
  Age: 59 Year
  Sex: Female
  Weight: 97.977 kg

DRUGS (25)
  1. MAGNESIUM [Concomitant]
  2. ESOMEPRAZOLE [Concomitant]
  3. AZELASTINE HYDROCHLORIDE [Concomitant]
  4. ALPRAZOLAM [Concomitant]
  5. ARMODAFINIL [Concomitant]
  6. FEXOFENADINE HCL [Concomitant]
  7. MULTI-VITAMIN [Concomitant]
  8. MEPERIDINE HYDROCHLORIDE [Concomitant]
  9. BUTORPFIANOL TARTRATE (STADOL) [Concomitant]
  10. XYREM [Suspect]
     Indication: NARCOLEPSY
     Dosage: 4.5 GM (2.25 GM, 2 IN 1 D),ORAL, 9 GM (4.5 GM,2 IN 1 D),ORAL
     Route: 048
     Dates: start: 20110512
  11. XYREM [Suspect]
     Indication: NARCOLEPSY
     Dosage: 4.5 GM (2.25 GM, 2 IN 1 D),ORAL, 9 GM (4.5 GM,2 IN 1 D),ORAL
     Route: 048
     Dates: start: 20110426
  12. M#TFORMIN HYDROCHLORIDE W/SITAGLIPTIN PHOSPHATE [Concomitant]
  13. HYDROMORPHONE HYDROCHLORIDE [Concomitant]
  14. BIOTIN [Concomitant]
  15. DULOXETINE HYDROCHLORIDE [Concomitant]
  16. ESTROVEN [Concomitant]
  17. SIMVASTATIN [Concomitant]
  18. CARVEDILOL [Concomitant]
  19. MELOXICAM [Concomitant]
  20. MOMETASONE FURCATE [Concomitant]
  21. BUTORPHANOL TARTRATE (STADOL) [Concomitant]
  22. PROMETHAZINE HCL [Concomitant]
  23. TORSEMIDE [Concomitant]
  24. LOVAZA [Concomitant]
  25. GABAPENTIN [Concomitant]

REACTIONS (5)
  - FATIGUE [None]
  - DIZZINESS [None]
  - INTERVERTEBRAL DISC OPERATION [None]
  - HEADACHE [None]
  - NAUSEA [None]
